FAERS Safety Report 14607522 (Version 3)
Quarter: 2018Q3

REPORT INFORMATION
  Report Type: Report from Study
  Country: CH (occurrence: CH)
  Receive Date: 20180307
  Receipt Date: 20180905
  Transmission Date: 20181010
  Serious: Yes (Hospitalization)
  Sender: FDA-Public Use
  Company Number: CH-JNJFOC-20180300780

PATIENT
  Age: 56 Year
  Sex: Male
  Weight: 66 kg

DRUGS (17)
  1. STELARA [Suspect]
     Active Substance: USTEKINUMAB
     Indication: PSORIASIS
     Route: 058
     Dates: start: 20170814, end: 20171215
  2. VITAMIN B COMPLEX [Concomitant]
     Active Substance: CYANOCOBALAMIN\DEXPANTHENOL\NIACINAMIDE\PYRIDOXINE HYDROCHLORIDE\RIBOFLAVIN 5^-PHOSPHATE SODIUM\THIAMINE HYDROCHLORIDE\VITAMIN B COMPLEX
     Dosage: MORNING
     Route: 048
  3. MOTILIUM [Concomitant]
     Active Substance: DOMPERIDONE
     Dosage: 30 MINUTES BEFORE A MEAL
     Route: 048
  4. LORAZEPAM. [Concomitant]
     Active Substance: LORAZEPAM
     Dosage: PATIENT TAKE AS NEEDED TO SLEEP
     Route: 048
  5. STELARA [Suspect]
     Active Substance: USTEKINUMAB
     Indication: PSORIASIS
     Route: 058
     Dates: start: 20170814, end: 20171215
  6. ATARAX [Concomitant]
     Active Substance: HYDROXYZINE HYDROCHLORIDE
     Dosage: BED TIME
     Route: 048
  7. ATENOLOL SPIRIG [Concomitant]
     Route: 048
  8. ACIDUM FOLICUM STREULI [Concomitant]
     Active Substance: FOLIC ACID
     Dosage: MORNING
     Route: 048
  9. BUSCOPAN [Concomitant]
     Active Substance: BUTYLSCOPOLAMINE BROMIDE
     Dosage: MORNING
     Route: 048
  10. ESOMEPRAZOLE [Concomitant]
     Active Substance: ESOMEPRAZOLE
     Dosage: MORNING
     Route: 048
  11. SYMBICORT [Concomitant]
     Active Substance: BUDESONIDE\FORMOTEROL FUMARATE DIHYDRATE
     Dosage: 0.2+0.006 MG/DOSE
     Route: 055
  12. ASPIRIN CARDIO [Concomitant]
     Active Substance: ASPIRIN
     Dosage: MORNING
  13. CITALOPRAM [Concomitant]
     Active Substance: CITALOPRAM HYDROBROMIDE
     Dosage: MORNING
     Route: 048
  14. BENERVA [Concomitant]
     Active Substance: THIAMINE HYDROCHLORIDE
     Dosage: MORNING
     Route: 048
  15. FELODIPIN MEPHA [Concomitant]
     Dosage: MORNING
     Route: 048
  16. NOVALGIN [Concomitant]
     Dosage: 30 MINUTES BEFORE A MEAL
     Route: 048
  17. CORDARONE [Concomitant]
     Active Substance: AMIODARONE HYDROCHLORIDE
     Dosage: MORNING
     Route: 048

REACTIONS (10)
  - Malnutrition [Unknown]
  - Splenomegaly [Unknown]
  - Cerebral atrophy [Unknown]
  - Haemorrhoids [Unknown]
  - Diarrhoea [Unknown]
  - Dementia [Unknown]
  - Alcohol withdrawal syndrome [Unknown]
  - Hepatic cirrhosis [Unknown]
  - Steatohepatitis [Unknown]
  - Anaemia macrocytic [Unknown]

NARRATIVE: CASE EVENT DATE: 20171220
